FAERS Safety Report 14505991 (Version 12)
Quarter: 2019Q4

REPORT INFORMATION
  Report Type: Report from Study
  Country: PE (occurrence: PE)
  Receive Date: 20180208
  Receipt Date: 20191212
  Transmission Date: 20200122
  Serious: Yes (Other)
  Sender: FDA-Public Use
  Company Number: PE-SA-2018SA029850

PATIENT
  Age: 31 Year
  Sex: Female

DRUGS (1)
  1. ALEMTUZUMAB [Suspect]
     Active Substance: ALEMTUZUMAB
     Indication: MULTIPLE SCLEROSIS
     Dosage: 12 MG, QD
     Route: 041
     Dates: start: 20171019, end: 20171023

REACTIONS (38)
  - Anogenital warts [Not Recovered/Not Resolved]
  - Urobilinogen urine increased [Recovered/Resolved]
  - Nitrite urine present [Recovered/Resolved]
  - Proteinuria [Not Recovered/Not Resolved]
  - Bacterial test [Unknown]
  - Varicella zoster virus infection [Not Recovered/Not Resolved]
  - Pain [Not Recovered/Not Resolved]
  - Red blood cell sedimentation rate increased [Not Recovered/Not Resolved]
  - Blood bilirubin unconjugated decreased [Not Recovered/Not Resolved]
  - Crystal urine present [Unknown]
  - Urinary sediment present [Not Recovered/Not Resolved]
  - Productive cough [Recovering/Resolving]
  - Protein C increased [Unknown]
  - Blood immunoglobulin G increased [Not Recovered/Not Resolved]
  - C-reactive protein increased [Not Recovered/Not Resolved]
  - Anisocytosis [Recovered/Resolved]
  - Red blood cells urine positive [Not Recovered/Not Resolved]
  - Haemoglobin urine [Not Recovered/Not Resolved]
  - Lymphocyte percentage decreased [Recovered/Resolved]
  - Protein total abnormal [Unknown]
  - Hepatitis B antibody positive [Not Recovered/Not Resolved]
  - Alanine aminotransferase increased [Unknown]
  - Klebsiella infection [Unknown]
  - Culture urine positive [Recovered/Resolved]
  - Pharyngitis [Recovering/Resolving]
  - Headache [Recovering/Resolving]
  - Blood urea decreased [Not Recovered/Not Resolved]
  - Bacteriuria [Unknown]
  - Blood bilirubin decreased [Not Recovered/Not Resolved]
  - Red cell distribution width increased [Not Recovered/Not Resolved]
  - Platelet count increased [Recovered/Resolved]
  - White blood cells urine positive [Not Recovered/Not Resolved]
  - Vaginal infection [Unknown]
  - Malaise [Recovering/Resolving]
  - Protein urine absent [Unknown]
  - Photophobia [Recovering/Resolving]
  - Discomfort [Recovered/Resolved]
  - Aspartate aminotransferase increased [Unknown]

NARRATIVE: CASE EVENT DATE: 20180123
